FAERS Safety Report 7091374-4 (Version None)
Quarter: 2010Q4

REPORT INFORMATION
  Report Type: 
  Country: None (occurrence: None)
  Receive Date: 20101109
  Receipt Date: 20101103
  Transmission Date: 20110411
  Serious: Yes (Other)
  Sender: FDA-Public Use
  Company Number: A0889319A

PATIENT
  Sex: Female
  Weight: 109 kg

DRUGS (6)
  1. TYKERB [Suspect]
     Dosage: 1250MG PER DAY
     Route: 048
     Dates: start: 20100527
  2. ATACAND [Concomitant]
  3. ZOPICLONE [Concomitant]
  4. PERCOCET [Concomitant]
  5. NEXIUM [Concomitant]
  6. AERIUS [Concomitant]

REACTIONS (5)
  - ERYTHEMA [None]
  - HAEMORRHAGE [None]
  - PAIN IN EXTREMITY [None]
  - PALMAR-PLANTAR ERYTHRODYSAESTHESIA SYNDROME [None]
  - PARAESTHESIA [None]
